FAERS Safety Report 8507045 (Version 3)
Quarter: 2013Q1

REPORT INFORMATION
  Report Type: Spontaneous
  Country: US (occurrence: US)
  Receive Date: 20120412
  Receipt Date: 20130326
  Transmission Date: 20140127
  Serious: No
  Sender: FDA-Public Use
  Company Number: US-ASTRAZENECA-2011SE71898

PATIENT
  Age: 68 Year
  Sex: Female

DRUGS (5)
  1. NEXIUM [Suspect]
     Indication: GASTROOESOPHAGEAL REFLUX DISEASE
     Route: 048
  2. NEXIUM [Suspect]
     Indication: ABDOMINAL DISCOMFORT
     Route: 048
  3. TOPROL XL [Suspect]
     Route: 048
  4. CRESTOR [Suspect]
     Indication: VERY LOW DENSITY LIPOPROTEIN INCREASED
     Route: 048
  5. CRESTOR [Suspect]
     Indication: CARDIAC DISORDER
     Route: 048

REACTIONS (6)
  - Aphagia [Unknown]
  - Activities of daily living impaired [Unknown]
  - Gastrooesophageal reflux disease [Unknown]
  - Malaise [Unknown]
  - Abdominal discomfort [Unknown]
  - Drug dose omission [Unknown]
